FAERS Safety Report 5087604-0 (Version None)
Quarter: 2006Q3

REPORT INFORMATION
  Report Type: 
  Country: None (occurrence: None)
  Receive Date: 20060727
  Receipt Date: 20060403
  Transmission Date: 20061208
  Serious: Yes (Other)
  Sender: FDA-Public Use
  Company Number: 2006048112

PATIENT
  Sex: Female

DRUGS (6)
  1. LYRICA [Suspect]
     Indication: SLEEP DISORDER
  2. NEURONTIN [Suspect]
     Indication: DRUG USE FOR UNKNOWN INDICATION
  3. SEROQUEL [Concomitant]
  4. LAMICTAL [Concomitant]
  5. ALL OTHER THERAPEUTIC PRODUCTS (ALL OTHER THERAPEUTIC PRODUCTS) [Concomitant]
  6. LEXAPRO [Concomitant]

REACTIONS (3)
  - DIZZINESS [None]
  - DRUG DEPENDENCE [None]
  - VISION BLURRED [None]
